FAERS Safety Report 9221824 (Version 1)
Quarter: 2013Q2

REPORT INFORMATION
  Report Type: Spontaneous
  Country: US (occurrence: None)
  Receive Date: 20130408
  Receipt Date: 20130408
  Transmission Date: 20140414
  Serious: Yes (Hospitalization)
  Sender: FDA-Public Use
  Company Number: SYM-2013-02410

PATIENT
  Age: 75 Year
  Sex: Female

DRUGS (2)
  1. DILTIAZEM HYDROCHLORIDE [Suspect]
     Dosage: 30 MG, 2 IN 1D, ORAL
     Route: 048
     Dates: end: 20021112
  2. TIKOSYN [Suspect]
     Dosage: 250 MCG, 2 IN 1 D, ORAL
     Route: 048
     Dates: start: 20021112

REACTIONS (3)
  - Electrocardiogram QT prolonged [None]
  - Creatinine renal clearance decreased [None]
  - Blood potassium decreased [None]
